FAERS Safety Report 7284317-1 (Version None)
Quarter: 2011Q1

REPORT INFORMATION
  Report Type: 
  Country: None (occurrence: None)
  Receive Date: 20110209
  Receipt Date: 20110128
  Transmission Date: 20110831
  Serious: Yes (Hospitalization, Other)
  Sender: FDA-Public Use
  Company Number: FR-ELI_LILLY_AND_COMPANY-FR201101007042

PATIENT
  Sex: Male

DRUGS (8)
  1. CISPLATIN [Concomitant]
     Dosage: 56 MG, UNKNOWN
     Route: 042
  2. GEMZAR [Suspect]
     Dosage: 1250 MG/M2, UNKNOWN
     Route: 042
     Dates: start: 20091125
  3. GEMZAR [Suspect]
     Dosage: 1250 MG/M2, UNKNOWN
     Route: 042
     Dates: start: 20091215
  4. GEMZAR [Suspect]
     Indication: BLADDER TRANSITIONAL CELL CARCINOMA
     Dosage: 1250 MG/M2, UNKNOWN
     Route: 042
     Dates: start: 20090917
  5. GEMZAR [Suspect]
     Dosage: 1250 MG/M2, UNKNOWN
     Route: 042
     Dates: start: 20091012
  6. CISPLATIN [Concomitant]
     Indication: BLADDER TRANSITIONAL CELL CARCINOMA
     Dosage: 35 MG/M2, UNKNOWN
     Route: 042
     Dates: start: 20090917, end: 20091215
  7. GEMZAR [Suspect]
     Dosage: 1999 MG, UNKNOWN
     Route: 065
  8. GEMZAR [Suspect]
     Dosage: 1250 MG/M2, UNKNOWN
     Route: 042
     Dates: start: 20091103

REACTIONS (5)
  - ESCHERICHIA SEPSIS [None]
  - PYREXIA [None]
  - THROMBOCYTOPENIA [None]
  - LEUKOPENIA [None]
  - ANAEMIA [None]
